FAERS Safety Report 17923870 (Version 2)
Quarter: 2020Q2

REPORT INFORMATION
  Report Type: Report from Study
  Country: MX (occurrence: MX)
  Receive Date: 20200622
  Receipt Date: 20200626
  Transmission Date: 20200714
  Serious: Yes (Hospitalization, Other)
  Sender: FDA-Public Use
  Company Number: NVSC2020MX174335

PATIENT
  Age: 70 Year
  Sex: Male
  Weight: 68 kg

DRUGS (3)
  1. ATORVASTATIN [Concomitant]
     Active Substance: ATORVASTATIN
     Indication: BLOOD CHOLESTEROL INCREASED
     Dosage: 20 MG, QD (3 OR 4 YEARS AGO AS OF 23 JUN 2020)
     Route: 048
  2. TAMSULOSIN [Concomitant]
     Active Substance: TAMSULOSIN
     Indication: BLOOD CHOLESTEROL INCREASED
     Dosage: 1 DF, QD (1 YEAR AGO AS OF 23 JUN 2020)
     Route: 048
  3. CO-DIOVAN [Suspect]
     Active Substance: HYDROCHLOROTHIAZIDE\VALSARTAN
     Indication: HYPERTENSION
     Dosage: 1 DF (HYDROCHLOROTHIAZIDE 12.5 MG, VALSARTAN 80 MG, BID (APPROXIMATELY 8 OR 10 YEARS) (IN THE MORNIN
     Route: 048

REACTIONS (10)
  - Pneumonia [Recovered/Resolved]
  - Pulmonary oedema [Unknown]
  - Prostatomegaly [Not Recovered/Not Resolved]
  - Intestinal obstruction [Recovered/Resolved]
  - Venous occlusion [Recovered/Resolved]
  - Inappropriate schedule of product administration [Unknown]
  - Weight decreased [Recovered/Resolved]
  - Abdominal discomfort [Recovered/Resolved]
  - Infarction [Recovered/Resolved]
  - Feeling abnormal [Recovering/Resolving]

NARRATIVE: CASE EVENT DATE: 201910
